FAERS Safety Report 17966643 (Version 1)
Quarter: 2020Q3

REPORT INFORMATION
  Report Type: Spontaneous
  Country: US (occurrence: US)
  Receive Date: 20200701
  Receipt Date: 20200701
  Transmission Date: 20201103
  Serious: No
  Sender: FDA-Public Use
  Company Number: US-009507513-2006USA000522

PATIENT
  Sex: Female

DRUGS (2)
  1. ETONOGESTREL (+) ETHINYL ESTRADIOL [Suspect]
     Active Substance: ETHINYL ESTRADIOL\ETONOGESTREL
     Indication: CONTRACEPTION
     Dosage: POTENCY: 2.7 MG, 11.7 MG
     Route: 067
     Dates: start: 20200219
  2. NUVARING [Suspect]
     Active Substance: ETHINYL ESTRADIOL\ETONOGESTREL
     Dosage: UNK
     Route: 067
     Dates: start: 2015, end: 2020

REACTIONS (16)
  - Irritability [Unknown]
  - Hypertension [Unknown]
  - Dysmenorrhoea [Unknown]
  - Neurosis [Unknown]
  - Adverse event [Unknown]
  - Abdominal pain [Unknown]
  - Nausea [Unknown]
  - Headache [Unknown]
  - Migraine [Unknown]
  - Weight increased [Unknown]
  - Breast pain [Unknown]
  - Pruritus [Unknown]
  - Inflammation [Unknown]
  - Pain [Unknown]
  - Depression [Unknown]
  - Loss of libido [Unknown]

NARRATIVE: CASE EVENT DATE: 2020
